FAERS Safety Report 8298425-X (Version None)
Quarter: 2012Q2

REPORT INFORMATION
  Report Type: 
  Country: None (occurrence: None)
  Receive Date: 20120417
  Receipt Date: 20120403
  Transmission Date: 20120825
  Serious: Yes (Life-Threatening, Hospitalization)
  Sender: FDA-Public Use
  Company Number: METF20120006

PATIENT
  Age: 36 Year
  Sex: Male

DRUGS (1)
  1. METFORMIN HYDROCHLORIDE [Suspect]
     Indication: OVERDOSE
     Dosage: 45 GM, UNK, ORAL
     Route: 048

REACTIONS (16)
  - HAEMOLYTIC ANAEMIA [None]
  - TACHYPNOEA [None]
  - CARDIAC ARREST [None]
  - HEPATIC FUNCTION ABNORMAL [None]
  - PANCREATITIS [None]
  - BLOOD PRESSURE SYSTOLIC INCREASED [None]
  - METABOLIC ACIDOSIS [None]
  - HEART RATE INCREASED [None]
  - CONTINUOUS HAEMODIAFILTRATION [None]
  - OVERDOSE [None]
  - ABDOMINAL PAIN [None]
  - RENAL IMPAIRMENT [None]
  - PNEUMONIA ASPIRATION [None]
  - BLOOD GLUCOSE INCREASED [None]
  - VOMITING [None]
  - HEPATIC ENZYME INCREASED [None]
